FAERS Safety Report 6381607-1 (Version None)
Quarter: 2009Q3

REPORT INFORMATION
  Report Type: 
  Country: None (occurrence: None)
  Receive Date: 20090925
  Receipt Date: 20090911
  Transmission Date: 20100115
  Serious: Yes (Other)
  Sender: FDA-Public Use
  Company Number: DSA_41658_2009

PATIENT
  Age: 51 Year
  Sex: Male

DRUGS (12)
  1. ENALAPRIIL (ENALAPRIL) [Suspect]
     Indication: DRUG USE FOR UNKNOWN INDICATION
     Dosage: (20 MG QD ORAL)
     Route: 048
  2. AMPHOTERICIN B [Suspect]
     Indication: DRUG USE FOR UNKNOWN INDICATION
     Dosage: (DF)
  3. CIPROFLOXACIN [Suspect]
     Indication: DRUG USE FOR UNKNOWN INDICATION
     Dosage: (250 MG QD)
  4. ACYLOVIR /00587301/ [Concomitant]
  5. ASCORBIC ACID [Concomitant]
  6. CYCLOSPORINE [Concomitant]
  7. LEUCOVORIN CALCIUM [Concomitant]
  8. OMEPRAZOLE [Concomitant]
  9. PREDNISONE [Concomitant]
  10. RANITIDINE [Concomitant]
  11. URSODIOL [Concomitant]
  12. RITUXIMAB [Concomitant]

REACTIONS (1)
  - SYSTEMIC LUPUS ERYTHEMATOSUS RASH [None]
